FAERS Safety Report 8919825 (Version 1)
Quarter: 2012Q4

REPORT INFORMATION
  Report Type: 
  Country: US (occurrence: US)
  Receive Date: 20121121
  Receipt Date: 20121121
  Transmission Date: 20130627
  Serious: Yes (Hospitalization)
  Sender: FDA-Public Use
  Company Number: US-BAYER-2012-120089

PATIENT
  Age: 35 Year
  Sex: Female

DRUGS (17)
  1. YASMIN [Suspect]
     Indication: MENSTRUAL CYCLE MANAGEMENT
  2. YASMIN [Suspect]
     Indication: PERIMENOPAUSAL SYMPTOMS
  3. NEXIUM [Concomitant]
     Indication: GASTROESOPHAGEAL REFLUX DISEASE
     Dosage: 40 mg, UNK
  4. CALCIUM [Concomitant]
     Dosage: 500 mg, UNK
  5. MIDRIN [Concomitant]
     Dosage: 325-65-100mg
  6. ATENOLOL [Concomitant]
     Dosage: 50 mg, UNK
  7. PROPOXYPHENE [Concomitant]
     Dosage: 100-650mg
     Dates: start: 20051130, end: 20060304
  8. FLUOXETINE [Concomitant]
     Dosage: 20 mg, UNK
     Dates: start: 20060106
  9. TRAZODONE [Concomitant]
     Dosage: 50 mg, UNK
     Dates: start: 20060106, end: 20060226
  10. ZOLOFT [Concomitant]
     Indication: DEPRESSION
     Dosage: 50 mg, UNK
     Dates: start: 20060120
  11. ZOLOFT [Concomitant]
     Indication: DEPRESSION
     Dosage: UNK
     Dates: start: 20060204
  12. LORAZEPAM [Concomitant]
     Dosage: 0.5 mg, UNK
     Dates: start: 20060124
  13. PROMETHAZINE [Concomitant]
  14. CYCLOBENZAPRINE [Concomitant]
  15. DARVOCET [Concomitant]
  16. PAXIL [Concomitant]
  17. ALBUTEROL [Concomitant]
     Indication: ASTHMA

REACTIONS (2)
  - Pulmonary embolism [None]
  - Off label use [None]
